FAERS Safety Report 14174175 (Version 2)
Quarter: 2017Q4

REPORT INFORMATION
  Report Type: Spontaneous
  Country: US (occurrence: US)
  Receive Date: 20171109
  Receipt Date: 20171129
  Transmission Date: 20180321
  Serious: Yes (Hospitalization)
  Sender: FDA-Public Use
  Company Number: US-SUCAMPO PHARMACEUTICALS, INC.-SPI201701386

PATIENT

DRUGS (2)
  1. AMITIZA [Suspect]
     Active Substance: LUBIPROSTONE
     Indication: PRODUCT USED FOR UNKNOWN INDICATION
     Dosage: UNK
  2. AMITIZA [Suspect]
     Active Substance: LUBIPROSTONE
     Dosage: UNK, VIA G-TUBE
     Route: 050

REACTIONS (2)
  - Off label use [Unknown]
  - Adverse event [Unknown]

NARRATIVE: CASE EVENT DATE: 201706
